FAERS Safety Report 14738926 (Version 1)
Quarter: 2018Q2

REPORT INFORMATION
  Report Type: Report from Study
  Country: None (occurrence: BR)
  Receive Date: 20180410
  Receipt Date: 20180410
  Transmission Date: 20180711
  Serious: Yes (Other)
  Sender: FDA-Public Use
  Company Number: BR-ABBVIE-18K-020-2313492-00

PATIENT
  Age: 49 Year
  Sex: Female
  Weight: 86 kg

DRUGS (7)
  1. HUMIRA [Suspect]
     Active Substance: ADALIMUMAB
     Indication: ANKYLOSING SPONDYLITIS
     Route: 058
     Dates: start: 20171106
  2. ARTRITEC [Concomitant]
     Indication: RHEUMATIC DISORDER
  3. VELIJA [Concomitant]
     Active Substance: DULOXETINE HYDROCHLORIDE
     Indication: ANTIDEPRESSANT THERAPY
  4. SULFASALAZINE. [Concomitant]
     Active Substance: SULFASALAZINE
     Indication: RHEUMATIC DISORDER
  5. LYRICA [Concomitant]
     Active Substance: PREGABALIN
     Indication: FIBROMYALGIA
  6. DUAL [Concomitant]
     Indication: ANTIDEPRESSANT THERAPY
  7. MIRTAX [Concomitant]
     Indication: RHEUMATIC DISORDER

REACTIONS (6)
  - Nasal dryness [Unknown]
  - Gait inability [Unknown]
  - Labyrinthitis [Not Recovered/Not Resolved]
  - Sinusitis [Recovering/Resolving]
  - Bone pain [Unknown]
  - Facial pain [Unknown]

NARRATIVE: CASE EVENT DATE: 201803
